FAERS Safety Report 20938045 (Version 1)
Quarter: 2022Q2

REPORT INFORMATION
  Report Type: Spontaneous
  Country: US (occurrence: None)
  Receive Date: 20220608
  Receipt Date: 20220608
  Transmission Date: 20220721
  Serious: No
  Sender: FDA-Public Use
  Company Number: None

PATIENT
  Age: 66 Year
  Sex: Female
  Weight: 103.6 kg

DRUGS (4)
  1. CAPECITABINE [Suspect]
     Active Substance: CAPECITABINE
     Indication: Breast cancer female
     Dosage: FREQUENCY : TWICE A DAY;?
     Route: 048
  2. ALPRAZolam Oral Tablet [Concomitant]
  3. CeleBREX ORAL [Concomitant]
  4. DULOXETINE HCI ORAL [Concomitant]

REACTIONS (1)
  - Intestinal metastasis [None]

NARRATIVE: CASE EVENT DATE: 20220603
